FAERS Safety Report 8853715 (Version 2)
Quarter: 2012Q4

REPORT INFORMATION
  Report Type: 
  Country: JP (occurrence: JP)
  Receive Date: 20121022
  Receipt Date: 20121206
  Transmission Date: 20130627
  Serious: Yes (Hospitalization)
  Sender: FDA-Public Use
  Company Number: JP-PFIZER INC-2012256699

PATIENT
  Age: 71 Year
  Sex: Female
  Weight: 44 kg

DRUGS (3)
  1. INLYTA [Suspect]
     Indication: METASTATIC RENAL CELL CARCINOMA
     Dosage: 10 mg, daily
     Route: 048
     Dates: start: 20120921, end: 20121004
  2. LOXONIN [Concomitant]
     Indication: CHEST PAIN
     Dosage: UNK
     Route: 048
     Dates: start: 20120921
  3. LOXONIN [Concomitant]
     Indication: BACK PAIN
     Dosage: 1 DF, 2x/day
     Route: 048
     Dates: start: 20120927

REACTIONS (1)
  - Cardiac failure acute [Recovered/Resolved]
